FAERS Safety Report 6631420 (Version 2)
Quarter: 2020Q3

REPORT INFORMATION
  Report Type: Spontaneous
  Country: GB (occurrence: GB)
  Receive Date: 20080319
  Receipt Date: 20080401
  Transmission Date: 20201105
  Serious: Yes (Other)
  Sender: FDA-Public Use
  Company Number: GB-ROCHE-551349

PATIENT
  Age: 51 Year
  Sex: Female

DRUGS (4)
  1. CLODRONIC ACID [Suspect]
     Active Substance: CLODRONIC ACID
     Dosage: DRUG: CLODRONATE DISODIUM TETRAHYDRATE
     Route: 048
     Dates: start: 200104
  2. IBANDRONIC ACID. [Suspect]
     Active Substance: IBANDRONIC ACID
     Route: 048
     Dates: start: 200408
  3. UNSPECIFIED INGREDIENT [Suspect]
     Active Substance: UNSPECIFIED INGREDIENT
     Route: 042
     Dates: start: 200201
  4. ZOLEDRONIC ACID [Suspect]
     Active Substance: ZOLEDRONIC ACID
     Route: 042
     Dates: start: 200212

REACTIONS (16)
  - Dental caries [Recovered/Resolved]
  - Facial pain [Recovered/Resolved]
  - Mouth ulceration [Recovered/Resolved]
  - Bone sequestrum [Recovered/Resolved]
  - Nasal disorder [Recovered/Resolved]
  - Bone disorder [Recovered/Resolved]
  - Actinomycosis [Recovered/Resolved]
  - Breath odour [Recovered/Resolved]
  - Jaw disorder [Recovered/Resolved]
  - Mucosal inflammation [Recovered/Resolved]
  - Osteonecrosis [Recovered/Resolved]
  - Sequestrectomy [Recovered/Resolved]
  - Swelling face [Recovered/Resolved]
  - Teeth brittle [Recovered/Resolved]
  - Tooth disorder [Recovered/Resolved]
  - Weight decreased [Recovered/Resolved]
